FAERS Safety Report 24740561 (Version 1)
Quarter: 2024Q4

REPORT INFORMATION
  Report Type: Spontaneous
  Country: ES (occurrence: ES)
  Receive Date: 20241217
  Receipt Date: 20241217
  Transmission Date: 20250115
  Serious: Yes (Other)
  Sender: NOVO NORDISK
  Company Number: ES-NOVOPROD-1333774

PATIENT
  Age: 34 Year
  Sex: Male
  Weight: 111 kg

DRUGS (4)
  1. WEGOVY [Suspect]
     Active Substance: SEMAGLUTIDE
     Dosage: 38 CLICKS (SECOND ADMINISTRATION)
  2. WEGOVY [Suspect]
     Active Substance: SEMAGLUTIDE
     Indication: Product used for unknown indication
     Dosage: 19 CLICKS (FIRST DOSE)
  3. WEGOVY [Suspect]
     Active Substance: SEMAGLUTIDE
     Dosage: 38 CLICKS (THIRD ADMINISTRATION)
     Dates: end: 20241201
  4. ESOMEPRAZOLE [Concomitant]
     Active Substance: ESOMEPRAZOLE
     Dosage: UNK

REACTIONS (2)
  - Pain [Not Recovered/Not Resolved]
  - Burning sensation [Not Recovered/Not Resolved]
